FAERS Safety Report 12904184 (Version 1)
Quarter: 2016Q4

REPORT INFORMATION
  Report Type: Spontaneous
  Country: US (occurrence: US)
  Receive Date: 20161101
  Receipt Date: 20161101
  Transmission Date: 20170207
  Serious: Yes (Hospitalization)
  Sender: FDA-Public Use
  Company Number: None

PATIENT
  Age: 12 Year
  Sex: Female
  Weight: 70.7 kg

DRUGS (6)
  1. DEXAMETHASONE. [Suspect]
     Active Substance: DEXAMETHASONE
     Dates: end: 20161023
  2. ONCASPAR [Suspect]
     Active Substance: PEGASPARGASE
     Dates: end: 20161021
  3. DAUNORUBICIN [Suspect]
     Active Substance: DAUNORUBICIN
     Dates: end: 20161018
  4. CYTARABINE. [Suspect]
     Active Substance: CYTARABINE
     Dates: end: 20161018
  5. VINCRISTINE SULFATE. [Suspect]
     Active Substance: VINCRISTINE SULFATE
     Dates: end: 20161018
  6. ZOSYN [Concomitant]
     Active Substance: PIPERACILLIN SODIUM\TAZOBACTAM SODIUM

REACTIONS (14)
  - Haemoglobin decreased [None]
  - Renal impairment [None]
  - Hypotension [None]
  - Blood culture positive [None]
  - Urinary tract infection [None]
  - Peritonsillar abscess [None]
  - Urine output decreased [None]
  - Sepsis syndrome [None]
  - Tachycardia [None]
  - Respiratory distress [None]
  - Fungal infection [None]
  - Fluid overload [None]
  - Pulmonary oedema [None]
  - Platelet count decreased [None]

NARRATIVE: CASE EVENT DATE: 20161023
